FAERS Safety Report 7578694-1 (Version None)
Quarter: 2011Q2

REPORT INFORMATION
  Report Type: 
  Country: None (occurrence: None)
  Receive Date: 20110628
  Receipt Date: 20110622
  Transmission Date: 20111010
  Serious: Yes (Hospitalization)
  Sender: FDA-Public Use
  Company Number: FI-ABBOTT-11P-055-0734820-00

PATIENT
  Age: 52 Year
  Sex: Female

DRUGS (2)
  1. KALETRA [Suspect]
     Indication: HIV INFECTION
  2. ABACAVIR SULFATE AND LAMIVUDINE [Concomitant]
     Indication: PRODUCT USED FOR UNKNOWN INDICATION

REACTIONS (3)
  - PNEUMONIA [None]
  - OESOPHAGEAL CANDIDIASIS [None]
  - DRUG INEFFECTIVE [None]
